FAERS Safety Report 5713592-7 (Version None)
Quarter: 2008Q2

REPORT INFORMATION
  Report Type: 
  Country: None (occurrence: None)
  Receive Date: 20080418
  Receipt Date: 20071004
  Transmission Date: 20081010
  Serious: Yes (Death, Hospitalization)
  Sender: FDA-Public Use
  Company Number: 2007EN000091

PATIENT
  Age: 74 Year
  Sex: Male

DRUGS (7)
  1. ONCASPAR [Suspect]
     Indication: COLON CANCER METASTATIC
     Dosage: 1455 IU;QD;IV
     Route: 042
     Dates: start: 20070907, end: 20070907
  2. OXYCODONE HCL [Concomitant]
  3. PROCHLORPERAZINE [Concomitant]
  4. LYRICA [Concomitant]
  5. ACETAMINOPHEN AND HYDROCODONE BITARTRATE [Concomitant]
  6. ONDANSETRON [Concomitant]
  7. ATIVAN [Concomitant]

REACTIONS (11)
  - CHOLESTASIS [None]
  - CONSTIPATION [None]
  - DISEASE PROGRESSION [None]
  - FALL [None]
  - HEAD INJURY [None]
  - HEPATIC FAILURE [None]
  - LIMB INJURY [None]
  - METASTASES TO LIVER [None]
  - REFUSAL OF TREATMENT BY PATIENT [None]
  - REFUSAL OF TREATMENT BY RELATIVE [None]
  - RENAL CYST [None]
